FAERS Safety Report 9513854 (Version 1)
Quarter: 2013Q3

REPORT INFORMATION
  Report Type: Report from Study
  Country: AR (occurrence: AR)
  Receive Date: 20130910
  Receipt Date: 20130910
  Transmission Date: 20140515
  Serious: Yes (Hospitalization, Other)
  Sender: FDA-Public Use
  Company Number: PHHY2013AR099315

PATIENT
  Sex: Female

DRUGS (2)
  1. TRILEPTAL [Suspect]
     Indication: EPILEPSY
     Dosage: 1200 UNK, UNK
     Route: 048
  2. TRILEPTAL [Suspect]
     Dosage: 1 DF, DAY
     Route: 048
     Dates: end: 201302

REACTIONS (4)
  - Hyponatraemia [Recovered/Resolved with Sequelae]
  - Nervous system disorder [Unknown]
  - Blood pressure abnormal [Recovering/Resolving]
  - Dehydration [Recovering/Resolving]
